FAERS Safety Report 6031886-5 (Version None)
Quarter: 2008Q4

REPORT INFORMATION
  Report Type: 
  Country: None (occurrence: None)
  Receive Date: 20081229
  Receipt Date: 20071217
  Transmission Date: 20090506
  Serious: Yes (Life-Threatening)
  Sender: FDA-Public Use
  Company Number: WAES 0712USA07871

PATIENT
  Age: 59 Year
  Sex: Female

DRUGS (3)
  1. ZETIA [Suspect]
     Dosage: 10 MG, PO
     Route: 048
     Dates: start: 20071128, end: 20071214
  2. CENESTIN [Concomitant]
  3. TRICOR [Concomitant]

REACTIONS (5)
  - DYSGEUSIA [None]
  - FEELING ABNORMAL [None]
  - HYPOAESTHESIA ORAL [None]
  - STOMATITIS [None]
  - SWOLLEN TONGUE [None]
